FAERS Safety Report 9443455 (Version 1)
Quarter: 2013Q3

REPORT INFORMATION
  Report Type: Spontaneous
  Country: DE (occurrence: GB)
  Receive Date: 20130806
  Receipt Date: 20130806
  Transmission Date: 20140515
  Serious: Yes (Life-Threatening)
  Sender: FDA-Public Use
  Company Number: GB-FRI-1000047379

PATIENT
  Age: 79 Year
  Sex: Female
  Weight: 70 kg

DRUGS (6)
  1. ROFLUMILAST [Suspect]
     Indication: INCREASED UPPER AIRWAY SECRETION
     Dosage: 500 MCG
     Route: 048
     Dates: start: 201106
  2. ROFLUMILAST [Suspect]
     Indication: CHRONIC OBSTRUCTIVE PULMONARY DISEASE
  3. CARBOCYSTEINE [Concomitant]
  4. SALBUTAMOL [Concomitant]
  5. SERETIDE [Concomitant]
  6. TIOTROPIUM [Concomitant]

REACTIONS (3)
  - Gastrointestinal carcinoma [Not Recovered/Not Resolved]
  - Gastrointestinal disorder [Not Recovered/Not Resolved]
  - Rectal haemorrhage [Not Recovered/Not Resolved]
